FAERS Safety Report 12626271 (Version 1)
Quarter: 2016Q3

REPORT INFORMATION
  Report Type: Spontaneous
  Country: US (occurrence: US)
  Receive Date: 20160805
  Receipt Date: 20160805
  Transmission Date: 20161109
  Serious: Yes (Other)
  Sender: FDA-Public Use
  Company Number: US-009507513-1608USA000828

PATIENT
  Sex: Male

DRUGS (2)
  1. INVOKANA [Suspect]
     Active Substance: CANAGLIFLOZIN
     Indication: BLOOD GLUCOSE ABNORMAL
     Dosage: UNK
  2. JANUVIA [Suspect]
     Active Substance: SITAGLIPTIN PHOSPHATE
     Indication: BLOOD GLUCOSE ABNORMAL
     Dosage: UNK
     Route: 048

REACTIONS (2)
  - Diabetes mellitus inadequate control [Unknown]
  - Drug ineffective [Unknown]
